FAERS Safety Report 18144207 (Version 1)
Quarter: 2020Q3

REPORT INFORMATION
  Report Type: Spontaneous
  Country: US (occurrence: US)
  Receive Date: 20200812
  Receipt Date: 20200812
  Transmission Date: 20201103
  Serious: Yes (Death)
  Sender: FDA-Public Use
  Company Number: None

PATIENT
  Age: 59 Year
  Sex: Male
  Weight: 130 kg

DRUGS (10)
  1. HYDROMORPHONE [Concomitant]
     Active Substance: HYDROMORPHONE
  2. CEFEPIME [Concomitant]
     Active Substance: CEFEPIME HYDROCHLORIDE
     Dates: end: 20200729
  3. MEROPENEM. [Concomitant]
     Active Substance: MEROPENEM
     Dates: start: 20200724, end: 20200727
  4. TOCILIZUMAB. [Concomitant]
     Active Substance: TOCILIZUMAB
     Dates: start: 20200724, end: 20200724
  5. REMDESIVIR. [Suspect]
     Active Substance: REMDESIVIR
     Indication: COVID-19
     Route: 040
     Dates: start: 20200716, end: 20200720
  6. CEFTRIAXONE. [Concomitant]
     Active Substance: CEFTRIAXONE
     Dates: start: 20200717
  7. CONVALESCENT PLASMA [Concomitant]
     Active Substance: HUMAN PLASMA
     Dates: start: 20200718
  8. DEXAMETHASONE. [Concomitant]
     Active Substance: DEXAMETHASONE
     Dates: start: 20200716, end: 20200728
  9. ENOXAPARIN [Concomitant]
     Active Substance: ENOXAPARIN
     Dates: end: 20200728
  10. HYCODAN [Concomitant]
     Active Substance: HOMATROPINE METHYLBROMIDE\HYDROCODONE BITARTRATE

REACTIONS (10)
  - Dyspnoea [None]
  - Respiratory failure [None]
  - Serum ferritin [None]
  - Cough [None]
  - Pyrexia [None]
  - Malaise [None]
  - White blood cell count increased [None]
  - Alanine aminotransferase increased [None]
  - Hyperglycaemia [None]
  - Aspartate aminotransferase increased [None]

NARRATIVE: CASE EVENT DATE: 20200729
